FAERS Safety Report 8267425-8 (Version None)
Quarter: 2012Q2

REPORT INFORMATION
  Report Type: 
  Country: None (occurrence: None)
  Receive Date: 20120409
  Receipt Date: 20120401
  Transmission Date: 20120825
  Serious: Yes (Hospitalization, Other)
  Sender: FDA-Public Use
  Company Number: PHHY2012DE028401

PATIENT
  Sex: Male
  Weight: 76 kg

DRUGS (19)
  1. TORSEMIDE [Suspect]
     Indication: HYPERTENSION
     Dosage: 1 DF, QD
     Route: 048
     Dates: start: 20060428
  2. TEVETENS PLUS [Suspect]
     Indication: HYPERTENSION
     Dosage: 1 DF, UNK
     Route: 048
     Dates: start: 20060914
  3. ASPIRIN [Concomitant]
     Indication: COAGULOPATHY
  4. BETA BLOCKING AGENTS [Concomitant]
  5. ORAL ANTIDIABETICS [Concomitant]
  6. BERLININSULIN H BASAL [Suspect]
     Indication: DIABETES MELLITUS
     Dosage: 0-0-16
     Route: 058
     Dates: start: 20060428
  7. ASPIRIN [Concomitant]
     Indication: ATRIAL FIBRILLATION
     Dosage: 1 DF, UNK
     Dates: start: 20070723
  8. ACE INHIBITOR NOS [Concomitant]
  9. VASODILATORS USED IN CARDIAC DISEASES [Concomitant]
  10. PLATELET AGGREGATION INHIBITORS [Concomitant]
  11. ANTICOAGULANTS [Concomitant]
     Dosage: UNK
     Dates: end: 20100129
  12. OMEGA-3-ACID ETHYL ESTERS [Concomitant]
     Indication: HYPERLIPIDAEMIA
     Dosage: 1 DF, QD
     Dates: start: 20080701
  13. ALISKIREN [Suspect]
     Indication: HYPERTENSION
     Dosage: 300 MG, QD
     Route: 048
     Dates: end: 20120327
  14. AMLODIPINE [Suspect]
     Indication: HYPERTENSION
     Dosage: 1 DF, QD
     Route: 048
     Dates: start: 20080717
  15. BERLINSULIN [Suspect]
     Indication: DIABETES MELLITUS
     Dosage: 20-12-18
     Route: 058
     Dates: start: 20060428
  16. TORSEMIDE [Suspect]
     Indication: CARDIAC FAILURE
  17. HMG COA REDUCTASE INHIBITORS [Concomitant]
  18. PROSTAGUTT FORTE [Concomitant]
     Indication: PROSTATIC ADENOMA
     Dosage: 1 DF, QD
     Dates: start: 20001016
  19. ANTIDEPRESSANTS [Concomitant]

REACTIONS (4)
  - BRADYARRHYTHMIA [None]
  - BLOOD PRESSURE INCREASED [None]
  - ATRIAL FIBRILLATION [None]
  - CARDIAC FAILURE [None]
